FAERS Safety Report 8153199-8 (Version None)
Quarter: 2012Q1

REPORT INFORMATION
  Report Type: 
  Country: None (occurrence: None)
  Receive Date: 20120215
  Receipt Date: 20120208
  Transmission Date: 20120608
  Serious: Yes (Other)
  Sender: FDA-Public Use
  Company Number: 1000026629

PATIENT
  Age: 95 Year
  Sex: Female

DRUGS (6)
  1. ASPIRIN [Concomitant]
  2. POTASSIUM CHLORIDE [Concomitant]
  3. OMEPRAZOLE [Concomitant]
  4. CELEXA [Suspect]
     Indication: ANXIETY
     Dosage: 20 MG (20 MG, 1 IN 1 D), ORAL
     Route: 048
     Dates: start: 20100101, end: 20100101
  5. LASIX [Concomitant]
  6. BENTYL [Concomitant]

REACTIONS (4)
  - CONDITION AGGRAVATED [None]
  - DEPRESSION [None]
  - SOMNOLENCE [None]
  - ACTIVITIES OF DAILY LIVING IMPAIRED [None]
